FAERS Safety Report 4651022-7 (Version None)
Quarter: 2005Q2

REPORT INFORMATION
  Report Type: 
  Country: None (occurrence: None)
  Receive Date: 20050429
  Receipt Date: 20050419
  Transmission Date: 20051028
  Serious: Yes (Other)
  Sender: FDA-Public Use
  Company Number: 2005051895

PATIENT
  Age: 79 Year
  Sex: Female
  Weight: 56.246 kg

DRUGS (4)
  1. NEURONTIN [Suspect]
     Indication: ARTHRALGIA
     Dosage: 600MG 3 TIMES DAILY AS NECESSARY (600 MG), ORAL
     Route: 048
     Dates: start: 20040101
  2. GABAPENTIN [Suspect]
     Indication: ARTHRALGIA
  3. TEMAZEPAM [Concomitant]
  4. EZETIMBE (EZETIMBE) [Concomitant]

REACTIONS (4)
  - CONDITION AGGRAVATED [None]
  - LOWER LIMB FRACTURE [None]
  - TENDONITIS [None]
  - TREATMENT NONCOMPLIANCE [None]
